FAERS Safety Report 9845178 (Version 1)
Quarter: 2014Q1

REPORT INFORMATION
  Report Type: Spontaneous
  Country: US (occurrence: None)
  Receive Date: 20140122
  Receipt Date: 20140122
  Transmission Date: 20141002
  Serious: Yes (Hospitalization)
  Sender: FDA-Public Use
  Company Number: 2119664

PATIENT
  Age: 53 Year
  Sex: Female

DRUGS (6)
  1. FUROSEMIDE [Suspect]
     Indication: HYPERTENSION
  2. CELECOXIB [Suspect]
     Indication: PRODUCT USED FOR UNKNOWN INDICATION
  3. HYDROCHLOROTHIAZIDE [Suspect]
     Indication: HYPERTENSION
  4. LISINOPRIL [Suspect]
     Indication: HYPERTENSION
  5. OLMESARTAN [Suspect]
     Indication: HYPERTENSION
  6. HYDROMORPHONE [Concomitant]

REACTIONS (1)
  - Renal failure acute [None]
